FAERS Safety Report 12678408 (Version 1)
Quarter: 2016Q3

REPORT INFORMATION
  Report Type: Report from Study
  Country: BR (occurrence: BR)
  Receive Date: 20160823
  Receipt Date: 20160823
  Transmission Date: 20161109
  Serious: Yes (Hospitalization, Other)
  Sender: FDA-Public Use
  Company Number: BR-ABBVIE-16K-020-1705789-00

PATIENT
  Sex: Male

DRUGS (1)
  1. HUMIRA [Suspect]
     Active Substance: ADALIMUMAB
     Indication: ANKYLOSING SPONDYLITIS
     Route: 058
     Dates: start: 20140624, end: 2016

REACTIONS (6)
  - Bullous lung disease [Unknown]
  - Influenza [Unknown]
  - Pneumonia [Not Recovered/Not Resolved]
  - Immunodeficiency [Unknown]
  - Pain [Unknown]
  - Pulmonary mycosis [Unknown]

NARRATIVE: CASE EVENT DATE: 2016
